FAERS Safety Report 7257503-4 (Version None)
Quarter: 2011Q1

REPORT INFORMATION
  Report Type: 
  Country: None (occurrence: None)
  Receive Date: 20110129
  Receipt Date: 20100512
  Transmission Date: 20110831
  Serious: Yes (Other)
  Sender: FDA-Public Use
  Company Number: US-ABBOTT-10P-163-0644086-00

PATIENT
  Sex: Female
  Weight: 51.302 kg

DRUGS (5)
  1. MULTIVITAMIN [Concomitant]
     Indication: VITAMIN SUPPLEMENTATION
  2. XYZAL [Concomitant]
     Indication: RHINITIS ALLERGIC
  3. XANAX [Concomitant]
     Indication: PRODUCT USED FOR UNKNOWN INDICATION
  4. FISH OIL [Concomitant]
     Indication: VITAMIN SUPPLEMENTATION
  5. HUMIRA [Suspect]
     Indication: RHEUMATOID ARTHRITIS
     Route: 058
     Dates: start: 20090101, end: 20100401

REACTIONS (4)
  - WALDENSTROM'S MACROGLOBULINAEMIA [None]
  - RASH [None]
  - PSORIASIS [None]
  - PRURITUS [None]
